FAERS Safety Report 4885585-3 (Version None)
Quarter: 2006Q1

REPORT INFORMATION
  Report Type: 
  Country: None (occurrence: None)
  Receive Date: 20060119
  Receipt Date: 20060111
  Transmission Date: 20060701
  Serious: Yes (Hospitalization)
  Sender: FDA-Public Use
  Company Number: JP-MERCK-0601USA01689

PATIENT
  Age: 22 Year
  Sex: Male

DRUGS (5)
  1. PROPECIA [Suspect]
     Indication: ALOPECIA
     Route: 048
     Dates: start: 20051229, end: 20060107
  2. CRAVIT [Suspect]
     Route: 065
     Dates: end: 20060107
  3. BISOLVON [Concomitant]
     Route: 065
     Dates: end: 20060107
  4. UNIPHYL [Concomitant]
     Route: 048
     Dates: end: 20060107
  5. [THERAPY UNSPECIFIED] [Concomitant]
     Route: 065
     Dates: end: 20060107

REACTIONS (4)
  - BALANCE DISORDER [None]
  - DIFFICULTY IN WALKING [None]
  - DIZZINESS [None]
  - VISION BLURRED [None]
